FAERS Safety Report 9881873 (Version 17)
Quarter: 2016Q1

REPORT INFORMATION
  Report Type: Report from Study
  Country: US (occurrence: US)
  Receive Date: 20140207
  Receipt Date: 20160121
  Transmission Date: 20160526
  Serious: Yes (Hospitalization, Other)
  Sender: FDA-Public Use
  Company Number: US-SA-2014SA006914

PATIENT
  Age: 51 Year
  Sex: Female
  Weight: 113.4 kg

DRUGS (11)
  1. AUBAGIO [Suspect]
     Active Substance: TERIFLUNOMIDE
     Indication: MULTIPLE SCLEROSIS
     Route: 048
     Dates: start: 20140112, end: 20140119
  2. AUBAGIO [Suspect]
     Active Substance: TERIFLUNOMIDE
     Indication: MULTIPLE SCLEROSIS
     Route: 048
     Dates: start: 20151106
  3. METHOTREXATE [Concomitant]
     Active Substance: METHOTREXATE
     Dosage: APR-2013 OR MAY-2013
  4. CIPRO [Suspect]
     Active Substance: CIPROFLOXACIN HYDROCHLORIDE
     Indication: PRODUCT USED FOR UNKNOWN INDICATION
     Route: 065
  5. AUBAGIO [Suspect]
     Active Substance: TERIFLUNOMIDE
     Indication: MULTIPLE SCLEROSIS
     Route: 048
     Dates: start: 201404, end: 201405
  6. COPAXONE [Concomitant]
     Active Substance: GLATIRAMER ACETATE
     Dates: start: 20141101, end: 20141115
  7. VITAMIN D [Concomitant]
     Active Substance: CHOLECALCIFEROL
  8. REBIF [Concomitant]
     Active Substance: INTERFERON BETA-1A
     Dates: start: 20141001, end: 20141015
  9. AUBAGIO [Suspect]
     Active Substance: TERIFLUNOMIDE
     Indication: MULTIPLE SCLEROSIS
     Route: 048
     Dates: start: 20140327, end: 20140401
  10. PREDNISONE. [Concomitant]
     Active Substance: PREDNISONE
     Dates: start: 201306
  11. AMPYRA [Suspect]
     Active Substance: DALFAMPRIDINE
     Indication: GAIT DISTURBANCE
     Route: 048
     Dates: start: 201308

REACTIONS (38)
  - Nephrolithiasis [Unknown]
  - Central nervous system lesion [Unknown]
  - Pain [Recovered/Resolved]
  - Abdominal pain [Unknown]
  - Primary progressive multiple sclerosis [Unknown]
  - Movement disorder [Unknown]
  - Drug hypersensitivity [Unknown]
  - Abdominal pain lower [Recovering/Resolving]
  - Rash [Unknown]
  - Blood pressure fluctuation [Not Recovered/Not Resolved]
  - Drug dose omission [Unknown]
  - Peroneal nerve palsy [Unknown]
  - Gait disturbance [Unknown]
  - Pain [Not Recovered/Not Resolved]
  - Fatigue [Unknown]
  - Peripheral swelling [Not Recovered/Not Resolved]
  - Hypertension [Recovered/Resolved]
  - Myalgia [Unknown]
  - Asthenia [Recovering/Resolving]
  - Limb discomfort [Not Recovered/Not Resolved]
  - Influenza like illness [Recovered/Resolved]
  - Diarrhoea [Not Recovered/Not Resolved]
  - Kidney infection [Recovering/Resolving]
  - Multiple sclerosis [Unknown]
  - Back pain [Recovering/Resolving]
  - Abdominal discomfort [Unknown]
  - Muscle spasticity [Not Recovered/Not Resolved]
  - Balance disorder [Unknown]
  - Muscle spasms [Unknown]
  - Flatulence [Not Recovered/Not Resolved]
  - Headache [Unknown]
  - Arthralgia [Not Recovered/Not Resolved]
  - Muscle spasms [Not Recovered/Not Resolved]
  - Nausea [Not Recovered/Not Resolved]
  - Musculoskeletal stiffness [Not Recovered/Not Resolved]
  - Flushing [Unknown]
  - Chills [Recovered/Resolved]
  - Impaired driving ability [Unknown]

NARRATIVE: CASE EVENT DATE: 2014
